FAERS Safety Report 4905074-7 (Version None)
Quarter: 2006Q1

REPORT INFORMATION
  Report Type: 
  Country: None (occurrence: None)
  Receive Date: 20060208
  Receipt Date: 20060127
  Transmission Date: 20060701
  Serious: Yes (Other)
  Sender: FDA-Public Use
  Company Number: US-ROCHE-434389

PATIENT
  Sex: Female

DRUGS (2)
  1. ACCUTANE [Suspect]
     Indication: ACNE
     Route: 048
     Dates: start: 19960615, end: 19960615
  2. ACCUTANE [Suspect]
     Route: 048
     Dates: start: 19950615, end: 19950615

REACTIONS (1)
  - INFERTILITY [None]
